FAERS Safety Report 20495723 (Version 1)
Quarter: 2022Q1

REPORT INFORMATION
  Report Type: Spontaneous
  Country: US (occurrence: US)
  Receive Date: 20220221
  Receipt Date: 20220221
  Transmission Date: 20220423
  Serious: Yes (Death, Other)
  Sender: FDA-Public Use
  Company Number: US-PFIZER INC-202200252488

PATIENT
  Age: 69 Year
  Sex: Male

DRUGS (2)
  1. DIAZEPAM [Suspect]
     Active Substance: DIAZEPAM
     Dosage: UNK
  2. CHLOROQUINE [Suspect]
     Active Substance: CHLOROQUINE
     Dosage: UNK

REACTIONS (2)
  - Accidental exposure to product [Fatal]
  - Death [Fatal]

NARRATIVE: CASE EVENT DATE: 20200101
